FAERS Safety Report 7439558-7 (Version None)
Quarter: 2011Q2

REPORT INFORMATION
  Report Type: 
  Country: None (occurrence: None)
  Receive Date: 20110427
  Receipt Date: 20110425
  Transmission Date: 20111010
  Serious: Yes (Death, Other)
  Sender: FDA-Public Use
  Company Number: VE-PFIZER INC-2011088805

PATIENT
  Age: 73 Year
  Sex: Female

DRUGS (5)
  1. LIPITOR [Suspect]
     Indication: HYPERCHOLESTEROLAEMIA
     Dosage: 10 MG, 1X/DAY
     Route: 048
     Dates: start: 20090101, end: 20100101
  2. LOSARTAN [Concomitant]
     Dosage: 100 MG, 1X/DAY
     Route: 048
  3. INSULIN [Concomitant]
     Dosage: UNK
  4. FOLIC ACID [Concomitant]
     Dosage: UNK
     Route: 048
  5. FERROFOLIC [Concomitant]
     Dosage: UNK
     Route: 048

REACTIONS (2)
  - GANGRENE [None]
  - SEPSIS [None]
